FAERS Safety Report 17120772 (Version 1)
Quarter: 2019Q4

REPORT INFORMATION
  Report Type: Spontaneous
  Country: US (occurrence: US)
  Receive Date: 20191113
  Receipt Date: 20191113
  Transmission Date: 20200122
  Serious: Yes (Hospitalization)
  Sender: FDA-Public Use
  Company Number: None

PATIENT
  Age: 54 Year
  Sex: Male

DRUGS (11)
  1. POMALYST [Suspect]
     Active Substance: POMALIDOMIDE
     Indication: PLASMA CELL MYELOMA
     Dosage: ?          OTHER FREQUENCY:DAILY X 21D/28D ;??2 SEP 201- 04MAY2017 + #44; 08JUL2?
     Route: 048
  2. DEXAMETHASONE. [Concomitant]
     Active Substance: DEXAMETHASONE
  3. ACYCLOVIR. [Concomitant]
     Active Substance: ACYCLOVIR
  4. CALCIUM ACETATES [Concomitant]
  5. PONALIDOMIDE [Concomitant]
  6. ALBUTEROL. [Concomitant]
     Active Substance: ALBUTEROL
  7. AMLODIPINE [Concomitant]
     Active Substance: AMLODIPINE BESYLATE
  8. SENNOSIDES. [Concomitant]
     Active Substance: SENNOSIDES
  9. ELOTUZUMAB. [Concomitant]
     Active Substance: ELOTUZUMAB
  10. NALOXONE [Concomitant]
     Active Substance: NALOXONE
  11. ONDANSETRON [Concomitant]
     Active Substance: ONDANSETRON

REACTIONS (6)
  - Cholestasis [None]
  - Chromaturia [None]
  - Jaundice [None]
  - Abdominal pain [None]
  - Hyperbilirubinaemia [None]
  - Pancytopenia [None]

NARRATIVE: CASE EVENT DATE: 20191111
